FAERS Safety Report 25686148 (Version 1)
Quarter: 2025Q3

REPORT INFORMATION
  Report Type: Report from Study
  Country: US (occurrence: US)
  Receive Date: 20250815
  Receipt Date: 20250815
  Transmission Date: 20251021
  Serious: Yes (Other)
  Sender: GILEAD
  Company Number: US-GILEAD-2025-0724330

PATIENT
  Age: 76 Year
  Sex: Female

DRUGS (17)
  1. AZTREONAM LYSINE [Suspect]
     Active Substance: AZTREONAM LYSINE
     Indication: Cystic fibrosis
     Dosage: INHALE 75 MG VIA ALTERA NEBULIZER AS INSTRUCTED THREE TIMES DAILY EVERY OTHER MONTH
     Route: 055
  2. PULMOZYME [Concomitant]
     Active Substance: DORNASE ALFA
  3. NUCALA [Concomitant]
     Active Substance: MEPOLIZUMAB
  4. ALBUTEROL SULFATE [Concomitant]
     Active Substance: ALBUTEROL SULFATE
  5. ALEVE [Concomitant]
     Active Substance: NAPROXEN SODIUM
  6. TYLENOL [Concomitant]
     Active Substance: ACETAMINOPHEN
  7. OMEPRAZOLE [Concomitant]
     Active Substance: OMEPRAZOLE
  8. ZOLOFT [Concomitant]
     Active Substance: SERTRALINE HYDROCHLORIDE
  9. ATORVASTATIN [Concomitant]
     Active Substance: ATORVASTATIN
  10. PULMICORT TURBUHALER [Concomitant]
     Active Substance: BUDESONIDE
  11. MONTELUKAST [Concomitant]
     Active Substance: MONTELUKAST
  12. VANCOMYCIN [Concomitant]
     Active Substance: VANCOMYCIN
  13. LISINOPRIL [Concomitant]
     Active Substance: LISINOPRIL
  14. TYLENOL ARTHRITIS PAIN [Concomitant]
     Active Substance: ACETAMINOPHEN
  15. FLUTICASONE [Concomitant]
     Active Substance: FLUTICASONE
  16. GEMTESA [Concomitant]
     Active Substance: VIBEGRON
  17. NAPROXEN [Concomitant]
     Active Substance: NAPROXEN

REACTIONS (1)
  - Cystic fibrosis [Unknown]

NARRATIVE: CASE EVENT DATE: 20250401
